FAERS Safety Report 5486870-7 (Version None)
Quarter: 2007Q4

REPORT INFORMATION
  Report Type: 
  Country: None (occurrence: None)
  Receive Date: 20071012
  Receipt Date: 20071012
  Transmission Date: 20080405
  Serious: Yes (Death, Hospitalization)
  Sender: FDA-Public Use
  Company Number: None

PATIENT
  Sex: Female
  Weight: 75 kg

DRUGS (5)
  1. CYCLOSPORINE [Suspect]
     Dosage: 188 MG
  2. METHOTREXATE [Suspect]
     Dosage: 41 MG
  3. METHOXSALEN [Suspect]
     Dosage: 180.6 MCG
  4. CELLCEPT [Suspect]
     Dosage: 500 MG
  5. PENTOSTATIN [Suspect]
     Dosage: 13 MG

REACTIONS (12)
  - ACUTE GRAFT VERSUS HOST DISEASE IN LIVER [None]
  - BLOOD BILIRUBIN INCREASED [None]
  - BRADYCARDIA [None]
  - CULTURE URINE POSITIVE [None]
  - DISSEMINATED CYTOMEGALOVIRAL INFECTION [None]
  - HYPOTENSION [None]
  - PSEUDOMONAS INFECTION [None]
  - RESPIRATORY DISTRESS [None]
  - RESPIRATORY FAILURE [None]
  - SEPSIS [None]
  - SOFT TISSUE INFECTION [None]
  - SPUTUM CULTURE POSITIVE [None]
